FAERS Safety Report 5633809-7 (Version None)
Quarter: 2008Q1

REPORT INFORMATION
  Report Type: 
  Country: None (occurrence: None)
  Receive Date: 20080219
  Receipt Date: 20080204
  Transmission Date: 20080703
  Serious: Yes (Life-Threatening, Hospitalization)
  Sender: FDA-Public Use
  Company Number: ADE2008-0132

PATIENT
  Age: 39 Year
  Sex: Male

DRUGS (4)
  1. AMLODIPINE BESYLATE [Suspect]
     Dosage: 280MG X 1
  2. METFORMIN HYDROCHLORIDE [Suspect]
     Dosage: 6500MG X 1
  3. ASPIRIN [Suspect]
     Dosage: 975MG X 1
  4. DOXAZOSIN MESYLATE [Suspect]
     Dosage: 112MG X 1

REACTIONS (1)
  - BLOOD PRESSURE DECREASED [None]
